FAERS Safety Report 8453814-5 (Version None)
Quarter: 2012Q2

REPORT INFORMATION
  Report Type: 
  Country: None (occurrence: None)
  Receive Date: 20120620
  Receipt Date: 20120618
  Transmission Date: 20120825
  Serious: Yes (Hospitalization, Other)
  Sender: FDA-Public Use
  Company Number: PT-BAYER-2012-054211

PATIENT
  Age: 8 Year
  Sex: Male

DRUGS (9)
  1. PENICILLIN [Suspect]
  2. RIFAMPICIN [Concomitant]
     Indication: TUBERCULOSIS
  3. VANCOMYCIN [Suspect]
     Indication: ENDOCARDITIS
  4. GENTAMICIN SULFATE [Concomitant]
     Indication: ENDOCARDITIS
  5. PYRAZINAMIDE [Concomitant]
     Indication: TUBERCULOSIS
  6. PENICILLIN [Suspect]
  7. PREDNISOLONE [Suspect]
  8. ASPIRIN [Suspect]
  9. ISONIAZID [Suspect]
     Indication: TUBERCULOSIS

REACTIONS (5)
  - HEPATITIS TOXIC [None]
  - RENAL FAILURE [None]
  - CARDIAC FAILURE [None]
  - DEPRESSION [None]
  - HYPERSENSITIVITY [None]
